FAERS Safety Report 14028274 (Version 1)
Quarter: 2017Q4

REPORT INFORMATION
  Report Type: Spontaneous
  Country: US (occurrence: US)
  Receive Date: 20171001
  Receipt Date: 20171001
  Transmission Date: 20180321
  Serious: Yes (Other)
  Sender: FDA-Public Use
  Company Number: None

PATIENT
  Sex: Female
  Weight: 90 kg

DRUGS (4)
  1. CLONIDINE. [Concomitant]
     Active Substance: CLONIDINE
  2. PAROXETINE 40MG 1 TABLET EVERY DAY. [Suspect]
     Active Substance: PAROXETINE HYDROCHLORIDE
  3. BLACK COHASH [Concomitant]
  4. LORAZEPAM. [Concomitant]
     Active Substance: LORAZEPAM

REACTIONS (1)
  - Night sweats [None]

NARRATIVE: CASE EVENT DATE: 20161130
